FAERS Safety Report 7609324-8 (Version None)
Quarter: 2011Q3

REPORT INFORMATION
  Report Type: 
  Country: None (occurrence: None)
  Receive Date: 20110714
  Receipt Date: 20110701
  Transmission Date: 20111222
  Serious: Yes (Hospitalization)
  Sender: FDA-Public Use
  Company Number: PHHY2011FR59165

PATIENT
  Sex: Female

DRUGS (2)
  1. VOLTAREN [Suspect]
     Indication: SCIATICA
     Dosage: UNK UKN, UNK
     Route: 048
     Dates: start: 20110217, end: 20110307
  2. ESOMEPRAZOLE MAGNESIUM [Suspect]
     Dosage: UNK UKN, UNK

REACTIONS (10)
  - LUNG DISORDER [None]
  - EOSINOPHILIA [None]
  - ELECTROCARDIOGRAM ABNORMAL [None]
  - CHEST DISCOMFORT [None]
  - LUNG INFILTRATION [None]
  - ASTHMATIC CRISIS [None]
  - ANXIETY [None]
  - DYSPNOEA [None]
  - BLOOD IMMUNOGLOBULIN E INCREASED [None]
  - ABDOMINAL PAIN UPPER [None]
